FAERS Safety Report 7088469-8 (Version None)
Quarter: 2010Q4

REPORT INFORMATION
  Report Type: 
  Country: None (occurrence: None)
  Receive Date: 20101108
  Receipt Date: 20101102
  Transmission Date: 20110411
  Serious: Yes (Other)
  Sender: FDA-Public Use
  Company Number: JP-PFIZER INC-2010118949

PATIENT
  Age: 87 Year
  Sex: Female

DRUGS (9)
  1. LYRICA [Suspect]
     Indication: PAIN IN EXTREMITY
     Dosage: 150 MG/DAY
     Route: 048
     Dates: start: 20100907, end: 20100909
  2. AMARYL [Concomitant]
     Dosage: 1 MG/DAY
  3. DIGOXIN [Concomitant]
     Dosage: 0.125 MG/DAY
  4. TORASEMIDE [Concomitant]
     Dosage: 4 MG/DAY
  5. MYSLEE [Concomitant]
     Dosage: 10 MG/DAY
  6. LOXONIN [Concomitant]
     Dosage: 60 MG, 3X/DAY
     Dates: start: 20100809
  7. MUCOSTA [Concomitant]
     Dosage: 100 MG, 3X/DAY
     Dates: start: 20100809
  8. PARIET [Concomitant]
     Dosage: 10 MG/DAY
     Dates: start: 20100809
  9. ACTOS [Concomitant]
     Dosage: UNK
     Dates: start: 20100813

REACTIONS (3)
  - ALTERED STATE OF CONSCIOUSNESS [None]
  - DIZZINESS [None]
  - SPEECH DISORDER [None]
